FAERS Safety Report 7930263-7 (Version None)
Quarter: 2011Q4

REPORT INFORMATION
  Report Type: 
  Country: None (occurrence: None)
  Receive Date: 20111117
  Receipt Date: 20111103
  Transmission Date: 20120403
  Serious: Yes (Hospitalization)
  Sender: FDA-Public Use
  Company Number: 1000025400

PATIENT
  Age: 79 Year
  Sex: Female

DRUGS (12)
  1. LEVOTHYROX (LEVOTHYROXINE SODIUM) (TABLETS) (LEVOTHYROXINE SODIUM) [Concomitant]
  2. IMOVANE (ZOPICLONE) (7.5 MILLIGRAM, TABLETS) (ZOPICLONE) [Concomitant]
  3. CONVERSYL (PERINDOPRIL ERBUMINE) (4 MILLIGRAM) (PERINDOPRIL ERBUMINE) [Concomitant]
  4. MOVICOL (POLYETHYLENE GLYCOL) (POWDER) (POLYETHYLENE GLYCOL) [Concomitant]
  5. CHRONADALATE (NIFEDIPINE) (30 MILLIGRAM, TABLETS) (NIFEDIPINE) [Concomitant]
  6. TERCIAN (CYAMEMAZINE) (DROPS) (CYAMEMAZINE) [Concomitant]
  7. ALDACTAZINE (ALTIZIDE SPIRONOLACTONE) (TABLETS) [Suspect]
     Dosage: 0.5 DOSAGE FORM (0.5 DOSAGE FORMS, 1 IN 1 D), ORAL
     Route: 048
     Dates: start: 20070101, end: 20110610
  8. MOPRAL (OMEPRAZOLE) (10 MILLIGRAM, TABLETS) (OMEPRAZOLE) [Concomitant]
  9. CITALOPRAM HYDROBROMIDE [Suspect]
     Dosage: 30 MG (30 MG, 1 IN 1 D), ORAL
     Route: 048
     Dates: start: 20020101, end: 20110610
  10. BISOPROLOL FUMARATE AND HYDROCHLOROTHIAZIDE [Suspect]
     Dosage: 1 DOSAGE FORM (1 DOSAGE FORMS, 1 IN 1 D), ORAL
     Route: 048
     Dates: start: 20020101, end: 20110610
  11. PLAVIX (CLOPIDOGREL BISULFATE) (75 MILLIGRAM, TABLETS) (CLOPIDOGREL BI [Concomitant]
  12. SERESTA (OXAZEPAM) (10 MILLIGRAM, TABLETS) (OXAZEPAM) [Concomitant]

REACTIONS (4)
  - HYPONATRAEMIA [None]
  - ACUTE RESPIRATORY DISTRESS SYNDROME [None]
  - HAEMOTHORAX [None]
  - HYPERTHERMIA [None]
